FAERS Safety Report 8851295 (Version 1)
Quarter: 2012Q4

REPORT INFORMATION
  Report Type: 
  Country: US (occurrence: US)
  Receive Date: 20121021
  Receipt Date: 20121021
  Transmission Date: 20130627
  Serious: Yes (Other)
  Sender: FDA-Public Use
  Company Number: US-MERCK-2012SP015377

PATIENT
  Sex: Female

DRUGS (3)
  1. PEG-INTRON [Suspect]
     Indication: HEPATITIS C
     Dosage: UNK
     Dates: start: 20111112
  2. VICTRELIS [Suspect]
     Indication: HEPATITIS C
     Dosage: UNK
     Dates: start: 20111209
  3. RIBASPHERE [Suspect]
     Indication: HEPATITIS C
     Dosage: UNK
     Dates: start: 20111112

REACTIONS (14)
  - Anaemia [Unknown]
  - Hypophagia [Unknown]
  - Eye disorder [Unknown]
  - Blister [Unknown]
  - Eye swelling [Unknown]
  - Cystitis [Recovered/Resolved]
  - Scar [Unknown]
  - Dysgeusia [Unknown]
  - Vomiting [Unknown]
  - Rash pruritic [Unknown]
  - Alopecia [Unknown]
  - Alopecia [Unknown]
  - Weight decreased [Unknown]
  - Weight decreased [Unknown]
